FAERS Safety Report 7814810-1 (Version None)
Quarter: 2011Q4

REPORT INFORMATION
  Report Type: 
  Country: None (occurrence: None)
  Receive Date: 20111012
  Receipt Date: 20111003
  Transmission Date: 20120403
  Serious: Yes (Other)
  Sender: FDA-Public Use
  Company Number: JPI-P-016722

PATIENT
  Age: 27 Year
  Sex: Female
  Weight: 65.7716 kg

DRUGS (10)
  1. PREDNISONE [Suspect]
     Indication: EAR INFECTION
     Dates: start: 20110824, end: 20110827
  2. PREDNISONE [Suspect]
     Indication: SINUSITIS
     Dates: start: 20110824, end: 20110827
  3. FLUTICASONE PROPIONATE [Concomitant]
  4. ETHINYL ESTRADIOL AND NORELGESTROMIN TRANSDERMAL [Suspect]
     Indication: CONTRACEPTION
     Dates: start: 20110901
  5. MOXIFLOXACIN [Suspect]
     Indication: SINUSITIS
     Dates: start: 20110824, end: 20110827
  6. MOXIFLOXACIN [Suspect]
     Indication: EAR INFECTION
     Dates: start: 20110824, end: 20110827
  7. AMOXICILLIN AND CLAVULANATE POTASSIUM [Concomitant]
  8. XYREM [Suspect]
     Indication: CATAPLEXY
     Dosage: 4.5 GM (2.25 GM, 2 IN 1 D), ORAL : 6 GM (3 GM,2 IN 1 D), ORAL
     Route: 048
     Dates: start: 20110815, end: 20110829
  9. XYREM [Suspect]
     Indication: CATAPLEXY
     Dosage: 4.5 GM (2.25 GM, 2 IN 1 D), ORAL : 6 GM (3 GM,2 IN 1 D), ORAL
     Route: 048
     Dates: start: 20110830
  10. NEURONTIN [Suspect]
     Indication: FIBROMYALGIA
     Dates: start: 20110901

REACTIONS (20)
  - POLYMENORRHOEA [None]
  - PANIC ATTACK [None]
  - FEELING DRUNK [None]
  - ACTIVITIES OF DAILY LIVING IMPAIRED [None]
  - MUSCLE TIGHTNESS [None]
  - WEIGHT DECREASED [None]
  - PHARYNGEAL OEDEMA [None]
  - TENDON DISORDER [None]
  - IMPAIRED DRIVING ABILITY [None]
  - NEUROPATHY PERIPHERAL [None]
  - HUNGER [None]
  - EMOTIONAL DISORDER [None]
  - MUSCLE SPASMS [None]
  - GAIT DISTURBANCE [None]
  - FIBROMYALGIA [None]
  - FEELING ABNORMAL [None]
  - SWOLLEN TONGUE [None]
  - ANAEMIA [None]
  - PHOTOSENSITIVITY REACTION [None]
  - NAUSEA [None]
